FAERS Safety Report 5844736-4 (Version None)
Quarter: 2008Q3

REPORT INFORMATION
  Report Type: 
  Country: None (occurrence: None)
  Receive Date: 20080814
  Receipt Date: 20080805
  Transmission Date: 20090109
  Serious: Yes (Other)
  Sender: FDA-Public Use
  Company Number: US-JNJFOC-20080801619

PATIENT
  Sex: Male
  Weight: 72.58 kg

DRUGS (9)
  1. DURAGESIC-100 [Suspect]
     Indication: NEUROPATHY PERIPHERAL
     Route: 062
  2. AMBIEN CR [Concomitant]
     Indication: SLEEP DISORDER
     Dosage: ONE AT BEDTIME
     Route: 048
  3. VALIUM [Concomitant]
     Indication: ANXIETY
     Dosage: AS NEEDED
     Route: 048
  4. ATIVAN [Concomitant]
     Indication: ANXIETY
     Dosage: 1 AS NEEDED TWICE A DAY
     Route: 048
  5. AMINOPYRIDINE [Concomitant]
     Indication: MULTIPLE SCLEROSIS
     Route: 048
  6. LIDODERM [Concomitant]
     Indication: PAIN IN EXTREMITY
     Route: 061
  7. LIDODERM [Concomitant]
     Route: 061
  8. BENZOCAINE [Concomitant]
     Indication: BURNING SENSATION
     Route: 061
  9. BENZOCAINE [Concomitant]
     Route: 061

REACTIONS (6)
  - BASAL CELL CARCINOMA [None]
  - INADEQUATE ANALGESIA [None]
  - PHARMACEUTICAL PRODUCT COMPLAINT [None]
  - THERAPEUTIC RESPONSE INCREASED [None]
  - WOUND COMPLICATION [None]
  - WRONG TECHNIQUE IN DRUG USAGE PROCESS [None]
